FAERS Safety Report 15413070 (Version 1)
Quarter: 2018Q3

REPORT INFORMATION
  Report Type: Spontaneous
  Country: NL (occurrence: NL)
  Receive Date: 20180921
  Receipt Date: 20180921
  Transmission Date: 20181010
  Serious: Yes (Hospitalization)
  Sender: FDA-Public Use
  Company Number: NL-MIST-TIR-2018-0974

PATIENT
  Age: 49 Year
  Sex: Female
  Weight: 70 kg

DRUGS (1)
  1. LEVOTHYROXINE. [Suspect]
     Active Substance: LEVOTHYROXINE
     Indication: HYPOTHYROIDISM
     Dosage: 1 DOSE FORM, OD
     Route: 065
     Dates: start: 201608, end: 2017

REACTIONS (8)
  - Hot flush [Recovering/Resolving]
  - Dyspnoea [Recovered/Resolved]
  - Therapeutic response unexpected [Unknown]
  - Palpitations [Recovered/Resolved]
  - Anxiety disorder [Recovering/Resolving]
  - Chest discomfort [Recovered/Resolved]
  - Panic disorder [Recovering/Resolving]
  - Insomnia [Recovering/Resolving]

NARRATIVE: CASE EVENT DATE: 201608
